FAERS Safety Report 17656183 (Version 1)
Quarter: 2020Q2

REPORT INFORMATION
  Report Type: Spontaneous
  Country: US (occurrence: US)
  Receive Date: 20200410
  Receipt Date: 20200410
  Transmission Date: 20200713
  Serious: No
  Sender: FDA-Public Use
  Company Number: US-PERRIGO-19US003094

PATIENT
  Age: 84 Year
  Sex: Female

DRUGS (1)
  1. ACETAMINOPHEN. [Suspect]
     Active Substance: ACETAMINOPHEN
     Indication: ARTHRITIS
     Dosage: UNKNOWN, UNKNOWN
     Route: 048
     Dates: start: 201903

REACTIONS (2)
  - Joint swelling [Unknown]
  - Pollakiuria [Unknown]

NARRATIVE: CASE EVENT DATE: 201903
